FAERS Safety Report 17074287 (Version 2)
Quarter: 2020Q3

REPORT INFORMATION
  Report Type: Spontaneous
  Country: GB (occurrence: GB)
  Receive Date: 20191126
  Receipt Date: 20200903
  Transmission Date: 20201102
  Serious: Yes (Disabling, Other)
  Sender: FDA-Public Use
  Company Number: GB-TORRENT-00022345

PATIENT
  Age: 50 Year
  Sex: Female
  Weight: 63 kg

DRUGS (2)
  1. ESCITALOPRAM [Suspect]
     Active Substance: ESCITALOPRAM OXALATE
     Indication: DEPRESSION
     Dosage: GRADUALLY REDUCED BY 5 MG EVERY 14 DAYS
     Dates: start: 201906, end: 201910
  2. MIRTAZAPINE. [Suspect]
     Active Substance: MIRTAZAPINE
     Indication: DEPRESSION
     Route: 048
     Dates: start: 20190220, end: 201906

REACTIONS (2)
  - Electrocardiogram QT prolonged [Recovered/Resolved]
  - Myopathy [Recovering/Resolving]

NARRATIVE: CASE EVENT DATE: 20190313
